FAERS Safety Report 5008345-1 (Version None)
Quarter: 2006Q2

REPORT INFORMATION
  Report Type: 
  Country: None (occurrence: None)
  Receive Date: 20060523
  Receipt Date: 20060518
  Transmission Date: 20061013
  Serious: Yes (Hospitalization)
  Sender: FDA-Public Use
  Company Number: FR-AVENTIS-200611830FR

PATIENT
  Age: 35 Year
  Sex: Male

DRUGS (3)
  1. FLAGYL [Suspect]
     Route: 042
     Dates: start: 20060323, end: 20060325
  2. ROCEPHIN [Suspect]
     Route: 042
     Dates: start: 20060323, end: 20060325
  3. CREON [Concomitant]

REACTIONS (2)
  - PLATELET PRODUCTION DECREASED [None]
  - THROMBOCYTOPENIA [None]
